FAERS Safety Report 7946938-X (Version None)
Quarter: 2011Q4

REPORT INFORMATION
  Report Type: 
  Country: None (occurrence: None)
  Receive Date: 20111129
  Receipt Date: 20111118
  Transmission Date: 20120403
  Serious: Yes (Hospitalization, Other)
  Sender: FDA-Public Use
  Company Number: US-ASTRAZENECA-2011SE65414

PATIENT
  Age: 810 Month
  Sex: Female

DRUGS (7)
  1. LOSARTAN POTASSIUM [Suspect]
  2. ALBUTEROL [Concomitant]
     Indication: ASTHMA
     Route: 055
  3. SYMBICORT [Suspect]
     Dosage: 160/4.5 MCG 2 PUFFS TWO TIMES A DAY
     Route: 055
     Dates: start: 20100801
  4. NORVASC [Concomitant]
     Indication: BLOOD PRESSURE
  5. GLIPIZIDE [Concomitant]
     Indication: TYPE 2 DIABETES MELLITUS
  6. SYMBICORT [Suspect]
     Dosage: 160/4.5 MCG 2 PUFFS DAILY
     Route: 055
  7. LISINOPRIL [Suspect]
     Route: 048

REACTIONS (5)
  - DRUG DOSE OMISSION [None]
  - DRUG HYPERSENSITIVITY [None]
  - CONVULSION [None]
  - URTICARIA [None]
  - INCORRECT DOSE ADMINISTERED [None]
